FAERS Safety Report 11335223 (Version 1)
Quarter: 2015Q3

REPORT INFORMATION
  Report Type: Spontaneous
  Country: GB (occurrence: GB)
  Receive Date: 20150804
  Receipt Date: 20150804
  Transmission Date: 20151125
  Serious: Yes (Hospitalization)
  Sender: FDA-Public Use
  Company Number: GB-AUROBINDO-AUR-APL-2015-06840

PATIENT
  Age: 73 Year
  Sex: Male

DRUGS (27)
  1. GABAPENTIN. [Suspect]
     Active Substance: GABAPENTIN
     Dosage: 300 MG, 3 TIMES A DAY (INCREASING DOSE AT WEEKLY INTERVALS)
  2. SERETIDE [Concomitant]
     Active Substance: FLUTICASONE FUROATE\SALMETEROL XINAFOATE
     Indication: PRODUCT USED FOR UNKNOWN INDICATION
     Dosage: 2 DF, TWO TIMES A DAY (2 PUFFS)
     Route: 055
  3. BISOPROLOL [Concomitant]
     Active Substance: BISOPROLOL
     Indication: PRODUCT USED FOR UNKNOWN INDICATION
     Dosage: 2.5 MG, ONCE A DAY
     Route: 065
  4. FUROSEMIDE. [Concomitant]
     Active Substance: FUROSEMIDE
     Indication: PRODUCT USED FOR UNKNOWN INDICATION
     Dosage: 80 MG, TWO TIMES A DAY (RECENTLY INCREASED.)
     Route: 065
  5. MORPHINE [Concomitant]
     Active Substance: MORPHINE
     Indication: PRODUCT USED FOR UNKNOWN INDICATION
     Dosage: 5 MG, UNK
     Route: 065
  6. SENNA [Concomitant]
     Active Substance: SENNA LEAF\SENNOSIDES\SENNOSIDES A AND B
     Indication: PRODUCT USED FOR UNKNOWN INDICATION
     Dosage: 15 MG, ONCE A DAY (AT NIGHT.)
     Route: 065
  7. METFORMIN [Concomitant]
     Active Substance: METFORMIN HYDROCHLORIDE
     Indication: PRODUCT USED FOR UNKNOWN INDICATION
     Dosage: 500 MG, 3 TIMES A DAY
     Route: 065
  8. SALBUTAMOL [Concomitant]
     Active Substance: ALBUTEROL
     Indication: PRODUCT USED FOR UNKNOWN INDICATION
     Route: 055
  9. GABAPENTIN. [Suspect]
     Active Substance: GABAPENTIN
     Dosage: 200 MG, 3 TIMES A DAY (INCREASING DOSE AT WEEKLY INTERVALS)
     Route: 065
  10. DOCUSATE [Concomitant]
     Active Substance: DOCUSATE
     Indication: PRODUCT USED FOR UNKNOWN INDICATION
     Dosage: 100 MG, (TWICE DAILY AS REQUIRED.)
     Route: 065
  11. LOSARTAN. [Concomitant]
     Active Substance: LOSARTAN
     Indication: PRODUCT USED FOR UNKNOWN INDICATION
     Dosage: 50 MG, ONCE A DAY
     Route: 065
  12. MORPHINE [Concomitant]
     Active Substance: MORPHINE
     Dosage: 40 MG, TWO TIMES A DAY (MODIFIED RELEASE. INCREASED FROM 15MG TWICE A DAY)
     Route: 065
     Dates: start: 201506
  13. RANITIDINE [Concomitant]
     Active Substance: RANITIDINE\RANITIDINE HYDROCHLORIDE
     Indication: PRODUCT USED FOR UNKNOWN INDICATION
     Dosage: 150 MG, TWO TIMES A DAY
     Route: 065
  14. SPIRONOLACTONE. [Concomitant]
     Active Substance: SPIRONOLACTONE
     Indication: PRODUCT USED FOR UNKNOWN INDICATION
     Dosage: 25 MG, ONCE A DAY
     Route: 065
  15. GABAPENTIN. [Suspect]
     Active Substance: GABAPENTIN
     Indication: PRODUCT USED FOR UNKNOWN INDICATION
     Dosage: 100 MG, 3 TIMES A DAY (INCREASING DOSE AT WEEKLY INTERVALS)
     Route: 065
     Dates: start: 20150603
  16. LANTUS [Concomitant]
     Active Substance: INSULIN GLARGINE
     Indication: PRODUCT USED FOR UNKNOWN INDICATION
     Dosage: 16 UNITS EVERY MORNING. 100 UNITS/ML
     Route: 065
  17. CAPASAL [Concomitant]
     Indication: PRODUCT USED FOR UNKNOWN INDICATION
     Route: 065
  18. ATORVASTATIN [Concomitant]
     Active Substance: ATORVASTATIN
     Indication: PRODUCT USED FOR UNKNOWN INDICATION
     Dosage: 80 MG, ONCE A DAY
     Route: 065
  19. CODEINE [Concomitant]
     Active Substance: CODEINE
     Indication: PRODUCT USED FOR UNKNOWN INDICATION
     Dosage: 60 MG, FOUR TIMES/DAY
     Route: 065
  20. FERROUS FUMARATE [Concomitant]
     Active Substance: FERROUS FUMARATE
     Indication: PRODUCT USED FOR UNKNOWN INDICATION
     Dosage: 210 MG, TWO TIMES A DAY
     Route: 065
  21. GLYCERYL TRINITRATE [Concomitant]
     Active Substance: NITROGLYCERIN
     Indication: PRODUCT USED FOR UNKNOWN INDICATION
     Dosage: 400 ?G, UNK
     Route: 060
  22. ISOSORBIDE MONONITRATE. [Concomitant]
     Active Substance: ISOSORBIDE MONONITRATE
     Indication: PRODUCT USED FOR UNKNOWN INDICATION
     Dosage: 90 MG, ONCE A DAY (MODIFIED RELEASE.)
     Route: 065
  23. WARFARIN [Concomitant]
     Active Substance: WARFARIN
     Indication: PRODUCT USED FOR UNKNOWN INDICATION
     Dosage: 51 MG, (8 MG MONDAY AND FRIDAY. 7 MG OTHER DAYS. (TARGET INTERNATIONAL NORMALISED RATIO 2.5).)
     Route: 065
  24. TIOTROPIUM BROMIDE [Concomitant]
     Active Substance: TIOTROPIUM BROMIDE
     Indication: PRODUCT USED FOR UNKNOWN INDICATION
     Dosage: 18 ?G, ONCE A DAY
     Route: 055
  25. NICORANDIL [Concomitant]
     Active Substance: NICORANDIL
     Indication: PRODUCT USED FOR UNKNOWN INDICATION
     Dosage: 20 MG, TWO TIMES A DAY
     Route: 065
  26. PARACETAMOL [Concomitant]
     Active Substance: ACETAMINOPHEN
     Indication: PRODUCT USED FOR UNKNOWN INDICATION
     Dosage: 1 G, FOUR TIMES/DAY
     Route: 065
  27. TAMSULOSIN [Concomitant]
     Active Substance: TAMSULOSIN
     Indication: PRODUCT USED FOR UNKNOWN INDICATION
     Dosage: 400 ?G, ONCE A DAY (MODIFIED RELEASE.)
     Route: 065

REACTIONS (3)
  - Tremor [Recovered/Resolved]
  - Dyskinesia [Recovered/Resolved]
  - Abnormal weight gain [Unknown]

NARRATIVE: CASE EVENT DATE: 20150610
